FAERS Safety Report 18367899 (Version 1)
Quarter: 2020Q4

REPORT INFORMATION
  Report Type: Spontaneous
  Country: JM (occurrence: GB)
  Receive Date: 20201009
  Receipt Date: 20201009
  Transmission Date: 20210114
  Serious: Yes (Death)
  Sender: FDA-Public Use
  Company Number: JM-009507513-2010GBR002653

PATIENT
  Age: 33 Year
  Sex: Female

DRUGS (11)
  1. COCAINE [Suspect]
     Active Substance: COCAINE
  2. GABAPENTIN. [Suspect]
     Active Substance: GABAPENTIN
  3. PROCYCLIDINE HYDROCHLORIDE [Suspect]
     Active Substance: PROCYCLIDINE HYDROCHLORIDE
  4. MIRTAZAPINE. [Suspect]
     Active Substance: MIRTAZAPINE
     Route: 048
  5. CLOZAPINE. [Suspect]
     Active Substance: CLOZAPINE
  6. CLONAZEPAM. [Suspect]
     Active Substance: CLONAZEPAM
  7. LORAZEPAM. [Concomitant]
     Active Substance: LORAZEPAM
  8. LAMOTRIGINE. [Suspect]
     Active Substance: LAMOTRIGINE
  9. ETIZOLAM [Suspect]
     Active Substance: ETIZOLAM
  10. ALBUTEROL. [Concomitant]
     Active Substance: ALBUTEROL
  11. MORPHINE [Suspect]
     Active Substance: MORPHINE

REACTIONS (1)
  - Toxicity to various agents [Fatal]
